FAERS Safety Report 11809788 (Version 1)
Quarter: 2015Q4

REPORT INFORMATION
  Report Type: Spontaneous
  Country: US (occurrence: US)
  Receive Date: 20151208
  Receipt Date: 20151208
  Transmission Date: 20160305
  Serious: Yes (Hospitalization, Other)
  Sender: FDA-Public Use
  Company Number: US-BEH-2015056353

PATIENT
  Age: 48 Year
  Sex: Female
  Weight: 73 kg

DRUGS (31)
  1. CITALOPRAM [Concomitant]
     Active Substance: CITALOPRAM HYDROBROMIDE
  2. TUSSIN [Concomitant]
     Active Substance: GUAIFENESIN
     Indication: COUGH
  3. ACETAMINOPHEN. [Concomitant]
     Active Substance: ACETAMINOPHEN
  4. IPRATROPIUM BROMIDE. [Concomitant]
     Active Substance: IPRATROPIUM BROMIDE
  5. PERCOCET [Concomitant]
     Active Substance: ACETAMINOPHEN\OXYCODONE HYDROCHLORIDE
  6. BENTYL [Concomitant]
     Active Substance: DICYCLOMINE HYDROCHLORIDE
  7. DIPHENHYDRAMINE. [Concomitant]
     Active Substance: DIPHENHYDRAMINE
  8. PHENERGAN [Concomitant]
     Active Substance: PROMETHAZINE HYDROCHLORIDE
  9. SYNTHROID [Concomitant]
     Active Substance: LEVOTHYROXINE SODIUM
  10. HIZENTRA [Suspect]
     Active Substance: HUMAN IMMUNOGLOBULIN G
     Dosage: 1 GM 5 ML VIALS
     Route: 058
  11. REMERON [Concomitant]
     Active Substance: MIRTAZAPINE
  12. HIZENTRA [Suspect]
     Active Substance: HUMAN IMMUNOGLOBULIN G
     Indication: IMMUNODEFICIENCY COMMON VARIABLE
     Dosage: 4 GM 20 ML VIALS
     Route: 058
  13. TRICOR [Concomitant]
     Active Substance: FENOFIBRATE
  14. ISOSORBIDE MONONITRATE. [Concomitant]
     Active Substance: ISOSORBIDE MONONITRATE
  15. NASONEX [Concomitant]
     Active Substance: MOMETASONE FUROATE
  16. PLAVIX [Concomitant]
     Active Substance: CLOPIDOGREL BISULFATE
  17. ALBUTEROL SULFATE. [Concomitant]
     Active Substance: ALBUTEROL SULFATE
  18. LIDOCAINE/PRILOCAINE [Concomitant]
  19. CEFTRIAXONE. [Concomitant]
     Active Substance: CEFTRIAXONE
  20. ZETIA [Concomitant]
     Active Substance: EZETIMIBE
  21. VITAMIN D [Concomitant]
     Active Substance: CHOLECALCIFEROL
  22. SEROQUEL [Concomitant]
     Active Substance: QUETIAPINE FUMARATE
  23. LIPITOR [Concomitant]
     Active Substance: ATORVASTATIN CALCIUM
  24. MOTRIN [Concomitant]
     Active Substance: IBUPROFEN
  25. COREG [Concomitant]
     Active Substance: CARVEDILOL
  26. SYMBICORT [Concomitant]
     Active Substance: BUDESONIDE\FORMOTEROL FUMARATE DIHYDRATE
  27. ASPIRIN. [Concomitant]
     Active Substance: ASPIRIN
  28. SPIRIVA [Concomitant]
     Active Substance: TIOTROPIUM BROMIDE MONOHYDRATE
  29. EPIPEN [Concomitant]
     Active Substance: EPINEPHRINE
  30. NORVASC [Concomitant]
     Active Substance: AMLODIPINE BESYLATE
  31. PROMETHAZINE [Concomitant]
     Active Substance: PROMETHAZINE\PROMETHAZINE HYDROCHLORIDE

REACTIONS (1)
  - Pneumonia [Recovered/Resolved]

NARRATIVE: CASE EVENT DATE: 20151116
